FAERS Safety Report 9764534 (Version 1)
Quarter: 2013Q4

REPORT INFORMATION
  Report Type: Spontaneous
  Country: JP (occurrence: JP)
  Receive Date: 20131217
  Receipt Date: 20131217
  Transmission Date: 20140711
  Serious: Yes (Other)
  Sender: FDA-Public Use
  Company Number: JP-ROCHE-1316417

PATIENT
  Age: 39 Year
  Sex: Male

DRUGS (6)
  1. XELODA [Suspect]
     Indication: RECTAL CANCER
     Dosage: DOSAGE IS UNCERTAIN.
     Route: 048
     Dates: start: 201004, end: 201010
  2. XELODA [Suspect]
     Indication: RECTAL CANCER
     Dosage: DOSAGE IS UNCERTAIN.
     Route: 048
     Dates: start: 201011, end: 201104
  3. AVASTIN [Suspect]
     Indication: RECTAL CANCER
     Dosage: DOSAGE IS UNCERTAIN.
     Route: 041
     Dates: start: 201004, end: 201010
  4. AVASTIN [Suspect]
     Indication: RECTAL CANCER
     Dosage: DOSAGE IS UNCERTAIN.
     Route: 041
     Dates: start: 201011, end: 201104
  5. OXALIPLATIN [Suspect]
     Indication: RECTAL CANCER
     Route: 041
     Dates: start: 201004, end: 201010
  6. OXALIPLATIN [Suspect]
     Indication: RECTAL CANCER
     Route: 041
     Dates: start: 201011, end: 201104

REACTIONS (7)
  - Varices oesophageal [Unknown]
  - Portal hypertension [Unknown]
  - Liver disorder [Recovered/Resolved]
  - Neuropathy peripheral [Unknown]
  - Ascites [Recovered/Resolved]
  - Splenomegaly [Unknown]
  - Platelet count decreased [Unknown]
